FAERS Safety Report 19369706 (Version 2)
Quarter: 2022Q2

REPORT INFORMATION
  Report Type: Spontaneous
  Country: US (occurrence: US)
  Receive Date: 20210603
  Receipt Date: 20220429
  Transmission Date: 20220721
  Serious: No
  Sender: FDA-Public Use
  Company Number: US-PFIZER INC-2016321296

PATIENT
  Age: 71 Year
  Sex: Female
  Weight: 78.56 kg

DRUGS (16)
  1. LYRICA [Suspect]
     Active Substance: PREGABALIN
     Indication: Fibromyalgia
     Dosage: 150 MG, 2X/DAY (1 CAPSULE 2 TIMES DAILY)
     Route: 048
     Dates: start: 20160519, end: 20160617
  2. LYRICA [Suspect]
     Active Substance: PREGABALIN
     Indication: Back pain
     Dosage: 150 MG, 2X/DAY (1 CAPSULE 2 TIMES DAILY)
     Route: 048
  3. LYRICA [Suspect]
     Active Substance: PREGABALIN
     Indication: Myalgia
  4. LYRICA [Suspect]
     Active Substance: PREGABALIN
     Indication: Pain
  5. TYLENOL WITH CODEINE [Concomitant]
     Active Substance: ACETAMINOPHEN\CODEINE PHOSPHATE
     Dosage: UNK, AS NEEDED (TAKE 1 TABLET EVERY 4 - 6 HOURS AS NEEDED) (TYLENOL 300 MG; CODEINE 30 MG)
     Route: 048
  6. TRAMADOL [Concomitant]
     Active Substance: TRAMADOL
     Dosage: UNK, AS NEEDED (1-2 TABLET EVERY 6 HOURS AS NEEDED; NOT TO EXCEED 6 PER DAY)
     Route: 048
  7. ALBUTEROL SULFATE [Concomitant]
     Active Substance: ALBUTEROL SULFATE
     Dosage: UNK (5 MG/ML (2.5 MG/0.5 ML SOLUTION FOR NEBULIZATION; DOSE: 2.5 MG/0.5 ML))
     Dates: start: 20160407, end: 20160607
  8. MUCINEX D [Concomitant]
     Active Substance: GUAIFENESIN\PSEUDOEPHEDRINE HYDROCHLORIDE
     Dosage: UNK ( 600 MG-60 MG)
     Dates: start: 20160414, end: 20160607
  9. TIZANIDINE [Concomitant]
     Active Substance: TIZANIDINE
     Indication: Back pain
     Dosage: 4 MG, AS NEEDED (PRN) (TAKE 1/2-1 EVERY (Q) 8 HOURS PRN)
     Route: 048
  10. PREMARIN [Concomitant]
     Active Substance: ESTROGENS, CONJUGATED
     Dosage: 1.25 MG, DAILY (TAKE 1 TABLET)
     Route: 048
  11. METAMUCIL [Concomitant]
     Active Substance: PLANTAGO SEED
     Dosage: UNK (1 GLASS 8OZ EACH DAY)
  12. HYOSCYAMINE [Concomitant]
     Active Substance: HYOSCYAMINE
     Dosage: 0.125 MG, 4X/DAY (TAKE 1 SL)
     Route: 060
  13. HYDROCHLOROTHIAZIDE [Concomitant]
     Active Substance: HYDROCHLOROTHIAZIDE
     Dosage: 25 MG, DAILY (TAKE 1 TABLET)
     Route: 048
  14. COENZYME Q10 [Concomitant]
     Active Substance: DIETARY SUPPLEMENT\UBIDECARENONE
     Dosage: 100 MG, 1X/DAY (100 MG-5 UNIT CAPSULE)
  15. BISOPROLOL /HYDROCHLOROTHIAZID [Concomitant]
     Dosage: 1 DF, DAILY (TAKE 1 TABLET)
     Route: 048
  16. ACIDOPHILUS [Concomitant]
     Active Substance: LACTOBACILLUS ACIDOPHILUS
     Indication: Fibromyalgia
     Dosage: 1 DF, 1X/DAY (1 Q DAY)

REACTIONS (2)
  - Off label use [Unknown]
  - Confusional state [Unknown]
